FAERS Safety Report 6227953-3 (Version None)
Quarter: 2009Q2

REPORT INFORMATION
  Report Type: 
  Country: None (occurrence: None)
  Receive Date: 20090611
  Receipt Date: 20090527
  Transmission Date: 20091009
  Serious: Yes (Hospitalization)
  Sender: FDA-Public Use
  Company Number: US-GENENTECH-284228

PATIENT
  Sex: Female

DRUGS (11)
  1. TRASTUZUMAB [Suspect]
     Indication: BREAST CANCER
     Dosage: 655 MG, Q3W
     Route: 042
     Dates: start: 20090514
  2. AVASTIN [Suspect]
     Indication: BREAST CANCER
     Dosage: 1230 MG, Q3W
     Route: 042
     Dates: start: 20090514
  3. DOCETAXEL [Suspect]
     Indication: BREAST CANCER
     Dosage: 146 MG, Q3W
     Route: 042
     Dates: start: 20090514
  4. CARBOPLATIN [Suspect]
     Indication: BREAST CANCER
     Dosage: 640 MG, Q3W
     Route: 042
     Dates: start: 20090514
  5. HYDROCHLOROTHIAZIDE [Concomitant]
     Indication: DRUG USE FOR UNKNOWN INDICATION
     Dosage: UNK
     Dates: start: 20090318
  6. DECADRON [Concomitant]
     Indication: DRUG USE FOR UNKNOWN INDICATION
     Dosage: UNK
     Dates: start: 20090513, end: 20090515
  7. EMEND [Concomitant]
     Indication: DRUG USE FOR UNKNOWN INDICATION
     Dosage: UNK
     Dates: start: 20090514, end: 20090514
  8. ATIVAN [Concomitant]
     Indication: DRUG USE FOR UNKNOWN INDICATION
     Dosage: UNK
     Dates: start: 20090514
  9. COMPAZINE [Concomitant]
     Indication: DRUG USE FOR UNKNOWN INDICATION
     Dosage: UNK
     Dates: start: 20090514
  10. ZOFRAN [Concomitant]
     Indication: DRUG USE FOR UNKNOWN INDICATION
     Dosage: UNK
     Dates: start: 20090514
  11. MAGIC MOUTH WASH (NYSTATIN, BENADRYL, CORTISO [Concomitant]
     Indication: DRUG USE FOR UNKNOWN INDICATION
     Dosage: UNK
     Dates: start: 20090519

REACTIONS (2)
  - ENTERITIS [None]
  - NEUTROPHIL COUNT [None]
